FAERS Safety Report 4995582-5 (Version None)
Quarter: 2006Q2

REPORT INFORMATION
  Report Type: 
  Country: None (occurrence: None)
  Receive Date: 20060508
  Receipt Date: 20060424
  Transmission Date: 20061013
  Serious: Yes (Hospitalization)
  Sender: FDA-Public Use
  Company Number: BE-ROCHE-445459

PATIENT
  Age: 17 Year
  Sex: Male

DRUGS (2)
  1. ROACCUTANE [Suspect]
     Indication: ACNE
     Route: 048
     Dates: start: 20060116, end: 20060423
  2. D-CURE [Concomitant]
     Dates: start: 20060414

REACTIONS (3)
  - APHASIA [None]
  - HEADACHE [None]
  - VOMITING [None]
